FAERS Safety Report 24712726 (Version 1)
Quarter: 2024Q4

REPORT INFORMATION
  Report Type: Spontaneous
  Country: US (occurrence: None)
  Receive Date: 20241209
  Receipt Date: 20241209
  Transmission Date: 20250114
  Serious: Yes (Hospitalization)
  Sender: Public
  Company Number: None

PATIENT
  Sex: Female

DRUGS (1)
  1. PROCRIT [Suspect]
     Active Substance: ERYTHROPOIETIN
     Indication: Renal impairment
     Dosage: OTHER STRENGTH : 40,000U/ML ;?FREQUENCY : WEEKLY;?
     Route: 058

REACTIONS (2)
  - Cerebrovascular accident [None]
  - Compression fracture [None]
